FAERS Safety Report 4349024-3 (Version None)
Quarter: 2004Q2

REPORT INFORMATION
  Report Type: 
  Country: None (occurrence: None)
  Receive Date: 20040421
  Receipt Date: 20040414
  Transmission Date: 20050107
  Serious: Yes (Life-Threatening)
  Sender: FDA-Public Use
  Company Number: 200410170BYL

PATIENT
  Age: 68 Year
  Sex: Female
  Weight: 71.9 kg

DRUGS (1)
  1. GAMIMUNE N 5% [Suspect]
     Indication: PLATELET COUNT DECREASED
     Dosage: 22.5 G, TOTAL DAILY, INTRAVENOUS DRIP
     Route: 041
     Dates: start: 20040322, end: 20040326

REACTIONS (3)
  - LIVER DISORDER [None]
  - PYREXIA [None]
  - WHITE BLOOD CELL COUNT DECREASED [None]
